FAERS Safety Report 9603041 (Version 1)
Quarter: 2013Q4

REPORT INFORMATION
  Report Type: Spontaneous
  Country: US (occurrence: US)
  Receive Date: 20131007
  Receipt Date: 20131007
  Transmission Date: 20140711
  Serious: Yes (Other)
  Sender: FDA-Public Use
  Company Number: US-BAYER-2013-119380

PATIENT
  Sex: 0

DRUGS (3)
  1. CIPROFLOXACIN [Suspect]
     Indication: MYCOBACTERIUM ABSCESSUS INFECTION
     Dosage: UNK
     Route: 048
     Dates: start: 2012
  2. MOXIFLOXACIN ORAL [Suspect]
     Indication: MYCOBACTERIUM ABSCESSUS INFECTION
     Dosage: 400 MG DAILY
     Route: 048
     Dates: start: 2012
  3. CLARITHROMYCIN [Concomitant]
     Indication: MYCOBACTERIUM ABSCESSUS INFECTION
     Dosage: 500 MG, BID
     Route: 048
     Dates: start: 2012

REACTIONS (7)
  - Drug ineffective for unapproved indication [None]
  - Off label use [None]
  - Diarrhoea [None]
  - Abdominal pain [None]
  - Fatigue [None]
  - Vulvovaginal candidiasis [None]
  - Haematotoxicity [None]
